FAERS Safety Report 16134836 (Version 1)
Quarter: 2019Q1

REPORT INFORMATION
  Report Type: Spontaneous
  Country: PT (occurrence: PT)
  Receive Date: 20190329
  Receipt Date: 20190329
  Transmission Date: 20190418
  Serious: Yes (Other)
  Sender: FDA-Public Use
  Company Number: PT-JNJFOC-20180127951

PATIENT
  Age: 47 Year
  Sex: Female

DRUGS (2)
  1. RISPERDAL CONSTA [Suspect]
     Active Substance: RISPERIDONE
     Indication: PRODUCT USED FOR UNKNOWN INDICATION
     Route: 065
     Dates: start: 2012, end: 2013
  2. OMEPRAZOLE. [Concomitant]
     Active Substance: OMEPRAZOLE
     Route: 065

REACTIONS (7)
  - Osteoporosis [Not Recovered/Not Resolved]
  - Surgery [Unknown]
  - Hypokinesia [Not Recovered/Not Resolved]
  - Asthenia [Unknown]
  - Thirst [Not Recovered/Not Resolved]
  - Feeling abnormal [Unknown]
  - Somnolence [Recovered/Resolved]
